FAERS Safety Report 24703839 (Version 2)
Quarter: 2024Q4

REPORT INFORMATION
  Report Type: Report from Study
  Country: NL (occurrence: NL)
  Receive Date: 20241206
  Receipt Date: 20241212
  Transmission Date: 20250114
  Serious: Yes (Hospitalization, Other)
  Sender: ABBVIE
  Company Number: NL-ABBVIE-6032387

PATIENT
  Age: 66 Year
  Sex: Male

DRUGS (6)
  1. CARBIDOPA\LEVODOPA [Suspect]
     Active Substance: CARBIDOPA\LEVODOPA
     Indication: Parkinson^s disease
     Dosage: MORNING DOSAGE (ML):- 14.5(ML), CONTINUOUS DOSAGE (ML/H):- 5.3 (ML/H), EXTRA DOSE(ML):- 2.50(ML),...
     Route: 050
     Dates: start: 20241202
  2. CARBIDOPA\LEVODOPA [Suspect]
     Active Substance: CARBIDOPA\LEVODOPA
     Dosage: MORNING DOSAGE (ML):- 14.5(ML), CONTINUOUS DOSAGE (ML/H):- 5.1 (ML/H), EXTRA DOSE(ML):- 2.50(ML),...
     Route: 050
     Dates: start: 20240918, end: 20241202
  3. CARBIDOPA\LEVODOPA [Suspect]
     Active Substance: CARBIDOPA\LEVODOPA
     Dosage: MORNING DOSAGE (ML):- 14.5(ML), CONTINUOUS DOSAGE (ML/H):- 5.1 (ML/H), EXTRA DOSE(ML):- 2.50(ML),...
     Route: 050
     Dates: start: 20240704, end: 20240918
  4. CARBIDOPA\LEVODOPA [Suspect]
     Active Substance: CARBIDOPA\LEVODOPA
     Dosage: MORNING DOSAGE (ML):- 14.5(ML), CONTINUOUS DOSAGE (ML/H):- 4.9 (ML/H), EXTRA DOSE(ML):- 2.50(ML),...
     Route: 050
     Dates: start: 20240702, end: 20240704
  5. CARBIDOPA\LEVODOPA [Suspect]
     Active Substance: CARBIDOPA\LEVODOPA
     Route: 050
     Dates: start: 20201130
  6. ROPINIROLE [Concomitant]
     Active Substance: ROPINIROLE
     Indication: Product used for unknown indication

REACTIONS (6)
  - Hip fracture [Not Recovered/Not Resolved]
  - Femur fracture [Not Recovered/Not Resolved]
  - Weight gain poor [Not Recovered/Not Resolved]
  - Fall [Not Recovered/Not Resolved]
  - Surgery [Recovered/Resolved]
  - Gait disturbance [Not Recovered/Not Resolved]

NARRATIVE: CASE EVENT DATE: 20241204
